FAERS Safety Report 7055117-2 (Version None)
Quarter: 2010Q4

REPORT INFORMATION
  Report Type: 
  Country: None (occurrence: None)
  Receive Date: 20101021
  Receipt Date: 20101015
  Transmission Date: 20110411
  Serious: Yes (Death, Other)
  Sender: FDA-Public Use
  Company Number: JP-CELGENEUS-087-21880-10101343

PATIENT
  Sex: Male

DRUGS (4)
  1. REVLIMID [Suspect]
     Indication: MULTIPLE MYELOMA
     Route: 048
     Dates: start: 20100817, end: 20100907
  2. LENADEX [Suspect]
     Indication: MULTIPLE MYELOMA
     Route: 048
     Dates: start: 20100730, end: 20100802
  3. LENADEX [Suspect]
     Route: 048
     Dates: start: 20100807, end: 20100810
  4. LENADEX [Suspect]
     Route: 048
     Dates: start: 20100814, end: 20100817

REACTIONS (2)
  - BRONCHOPNEUMONIA [None]
  - PNEUMOTHORAX [None]
